FAERS Safety Report 7612374-9 (Version None)
Quarter: 2011Q3

REPORT INFORMATION
  Report Type: 
  Country: None (occurrence: None)
  Receive Date: 20110716
  Receipt Date: 20110711
  Transmission Date: 20111222
  Serious: Yes (Life-Threatening, Hospitalization)
  Sender: FDA-Public Use
  Company Number: US-ASTRAZENECA-2011SE31720

PATIENT
  Age: 824 Month
  Sex: Male
  Weight: 94.8 kg

DRUGS (2)
  1. CRESTOR [Suspect]
     Route: 048
     Dates: start: 20070802, end: 20070814
  2. LISINOPRIL [Concomitant]

REACTIONS (4)
  - MYOCARDIAL INFARCTION [None]
  - APPARENT DEATH [None]
  - VASCULAR GRAFT [None]
  - HEART TRANSPLANT [None]
